FAERS Safety Report 20184846 (Version 1)
Quarter: 2021Q4

REPORT INFORMATION
  Report Type: Other
  Country: GB (occurrence: None)
  Receive Date: 20211214
  Receipt Date: 20211214
  Transmission Date: 20220303
  Serious: Yes (Death)
  Sender: FDA-Public Use
  Company Number: GB-ROCHE-2961826

PATIENT
  Sex: Female

DRUGS (1)
  1. ESBRIET [Suspect]
     Active Substance: PIRFENIDONE
     Indication: Idiopathic pulmonary fibrosis
     Dosage: PATIENT STILL ON INITIATION DOSE FOR 2 WEEKS, AND THEN 9 TABLETS DAILY.
     Route: 048
     Dates: start: 20211116

REACTIONS (3)
  - Balance disorder [Unknown]
  - Feeling hot [Unknown]
  - Death [Fatal]

NARRATIVE: CASE EVENT DATE: 20211209
